FAERS Safety Report 18935415 (Version 2)
Quarter: 2021Q1

REPORT INFORMATION
  Report Type: Report from Study
  Country: None (occurrence: BR)
  Receive Date: 20210224
  Receipt Date: 20210301
  Transmission Date: 20210420
  Serious: Yes (Other)
  Sender: FDA-Public Use
  Company Number: BR-ABBVIE-21K-020-3778888-00

PATIENT
  Age: 63 Year
  Sex: Female
  Weight: 62 kg

DRUGS (2)
  1. METHOTREXATE. [Concomitant]
     Active Substance: METHOTREXATE
     Indication: PRODUCT USED FOR UNKNOWN INDICATION
     Route: 065
  2. HUMIRA [Suspect]
     Active Substance: ADALIMUMAB
     Indication: AXIAL SPONDYLOARTHRITIS
     Route: 058
     Dates: start: 202011, end: 202011

REACTIONS (12)
  - Breast cyst [Not Recovered/Not Resolved]
  - Headache [Recovered/Resolved]
  - Malaise [Unknown]
  - Burning sensation [Recovered/Resolved]
  - Haematoma [Recovered/Resolved]
  - Breast mass [Not Recovered/Not Resolved]
  - Adverse event [Unknown]
  - Platelet count decreased [Recovered/Resolved]
  - Alopecia [Recovering/Resolving]
  - Breast pain [Not Recovered/Not Resolved]
  - Drug hypersensitivity [Unknown]
  - Contusion [Recovered/Resolved]

NARRATIVE: CASE EVENT DATE: 202011
